FAERS Safety Report 15321207 (Version 1)
Quarter: 2018Q3

REPORT INFORMATION
  Report Type: Spontaneous
  Country: US (occurrence: US)
  Receive Date: 20180821
  Receipt Date: 20180821
  Transmission Date: 20181010
  Serious: No
  Sender: FDA-Public Use
  Company Number: None

PATIENT
  Age: 74 Year
  Sex: Female
  Weight: 68.04 kg

DRUGS (1)
  1. REPATHA [Suspect]
     Active Substance: EVOLOCUMAB
     Indication: BLOOD CHOLESTEROL INCREASED
     Dosage: ?          QUANTITY:1 INJECTION;?
     Dates: start: 201710, end: 201804

REACTIONS (2)
  - Myalgia [None]
  - Depression [None]

NARRATIVE: CASE EVENT DATE: 201804
